FAERS Safety Report 12109489 (Version 2)
Quarter: 2016Q2

REPORT INFORMATION
  Report Type: Spontaneous
  Country: US (occurrence: US)
  Receive Date: 20160224
  Receipt Date: 20160408
  Transmission Date: 20160815
  Serious: No
  Sender: FDA-Public Use
  Company Number: US-JUBILANT PHARMA LTD-2015PR000154

PATIENT
  Sex: Female

DRUGS (1)
  1. HICON [Suspect]
     Active Substance: SODIUM IODIDE I-131
     Indication: PRODUCT USED FOR UNKNOWN INDICATION
     Dosage: 12 MCI, SINGLE DOSE
     Route: 048
     Dates: start: 20150515, end: 20150515

REACTIONS (2)
  - Rash erythematous [Unknown]
  - Pruritus [Unknown]
